FAERS Safety Report 24185683 (Version 4)
Quarter: 2024Q4

REPORT INFORMATION
  Report Type: Spontaneous
  Country: JP (occurrence: JP)
  Receive Date: 20240807
  Receipt Date: 20241122
  Transmission Date: 20250115
  Serious: Yes (Hospitalization, Other)
  Sender: PFIZER
  Company Number: JP-PFIZER INC-PV202400102387

PATIENT
  Age: 50 Year
  Sex: Female
  Weight: 43 kg

DRUGS (8)
  1. LITFULO [Suspect]
     Active Substance: RITLECITINIB TOSYLATE
     Indication: Alopecia areata
     Dosage: 50 MG, 1X/DAY
     Route: 048
     Dates: start: 20240426, end: 20240517
  2. ACTONEL [Concomitant]
     Active Substance: RISEDRONATE SODIUM
     Indication: Osteoporosis
     Dosage: 17.5 MG, 1X/DAY AT THE TIME OF AWAKENING
  3. ALLELOCK [Concomitant]
     Active Substance: OLOPATADINE HYDROCHLORIDE
     Indication: Urticaria
     Dosage: 5 MG, 2X/DAY IN THE MORNING AND EVENING
  4. AMITIZA [Concomitant]
     Active Substance: LUBIPROSTONE
     Indication: Constipation
     Dosage: 36 UG, 1X/DAY IN THE MORNING
  5. PREDNISOLONE [Concomitant]
     Active Substance: PREDNISOLONE
     Indication: Autoimmune hepatitis
     Dosage: 1 MG, 1X/DAY IN THE MORNING
  6. ROSUVASTATIN CALCIUM [Concomitant]
     Active Substance: ROSUVASTATIN CALCIUM
     Indication: Hyperlipidaemia
     Dosage: 2.5 MG, 1X/DAY IN THE MORNING
  7. SALIGREN [Concomitant]
     Indication: Sjogren^s syndrome
     Dosage: 30 MG, 3X/DAY IN THE MORNING, AFTERNOON, AND EVENING
  8. LEVOTHYROXINE [Concomitant]
     Active Substance: LEVOTHYROXINE
     Indication: Autoimmune thyroiditis
     Dosage: 56.25 UG, 1X/DAY IN THE MORNING

REACTIONS (1)
  - Meningitis aseptic [Recovered/Resolved]

NARRATIVE: CASE EVENT DATE: 20240517
